FAERS Safety Report 8516793-8 (Version None)
Quarter: 2012Q3

REPORT INFORMATION
  Report Type: 
  Country: None (occurrence: None)
  Receive Date: 20120718
  Receipt Date: 20120711
  Transmission Date: 20120928
  Serious: No
  Sender: FDA-Public Use
  Company Number: US-BAYER-2012-071153

PATIENT

DRUGS (4)
  1. BENADRYL [Concomitant]
  2. ALEVE (CAPLET) [Suspect]
  3. COUGH SYRUP [Concomitant]
  4. COUGH DROPS [Concomitant]

REACTIONS (1)
  - NO ADVERSE EVENT [None]
